FAERS Safety Report 25182626 (Version 1)
Quarter: 2025Q2

REPORT INFORMATION
  Report Type: Spontaneous
  Country: CA (occurrence: CA)
  Receive Date: 20250410
  Receipt Date: 20250410
  Transmission Date: 20250716
  Serious: Yes (Life-Threatening, Hospitalization, Other)
  Sender: RANBAXY
  Company Number: CA-SUN PHARMACEUTICAL INDUSTRIES LTD-2025R1-502539

PATIENT
  Age: 7 Month
  Sex: Male
  Weight: 2.83 kg

DRUGS (8)
  1. ARIPIPRAZOLE [Suspect]
     Active Substance: ARIPIPRAZOLE
     Indication: Psychotic symptom
     Route: 064
  2. DESVENLAFAXINE [Suspect]
     Active Substance: DESVENLAFAXINE
     Indication: Anxiety
     Route: 064
  3. DESVENLAFAXINE [Suspect]
     Active Substance: DESVENLAFAXINE
     Indication: Depression
  4. INSULIN NOS [Suspect]
     Active Substance: INSULIN NOS
     Indication: Gestational diabetes
     Route: 064
  5. BETAMETHASONE [Suspect]
     Active Substance: BETAMETHASONE
     Indication: Delivery
     Route: 064
  6. DALTEPARIN [Suspect]
     Active Substance: DALTEPARIN
     Indication: Deep vein thrombosis
     Route: 064
  7. LEVOMILNACIPRAN [Suspect]
     Active Substance: LEVOMILNACIPRAN
     Indication: Anxiety
     Route: 064
  8. LEVOMILNACIPRAN [Suspect]
     Active Substance: LEVOMILNACIPRAN
     Indication: Depression

REACTIONS (3)
  - Premature baby [Unknown]
  - Glycogen storage disorder [Recovering/Resolving]
  - Foetal exposure during pregnancy [Unknown]
